FAERS Safety Report 21128771 (Version 1)
Quarter: 2022Q3

REPORT INFORMATION
  Report Type: Spontaneous
  Country: US (occurrence: US)
  Receive Date: 20220725
  Receipt Date: 20220725
  Transmission Date: 20221027
  Serious: Yes (Other)
  Sender: FDA-Public Use
  Company Number: US-CURRAX PHARMACEUTICALS LLC-US-2022CUR022198

PATIENT
  Age: 68 Year
  Sex: Female

DRUGS (2)
  1. SF 5000 PLUS [Suspect]
     Active Substance: SODIUM FLUORIDE
     Indication: Dry mouth
     Dosage: UNK
     Route: 065
     Dates: start: 20220703
  2. LOSARTAN [Concomitant]
     Active Substance: LOSARTAN
     Indication: Blood pressure measurement
     Dosage: 50 MG, QD
     Route: 065

REACTIONS (1)
  - Angioedema [Unknown]

NARRATIVE: CASE EVENT DATE: 20220703
